FAERS Safety Report 20429698 (Version 1)
Quarter: 2022Q1

REPORT INFORMATION
  Report Type: Report from Study
  Country: FR (occurrence: FR)
  Receive Date: 20220204
  Receipt Date: 20220204
  Transmission Date: 20220423
  Serious: Yes (Hospitalization)
  Sender: FDA-Public Use
  Company Number: FR-SERVIER-S19010325

PATIENT

DRUGS (7)
  1. ONCASPAR [Suspect]
     Active Substance: PEGASPARGASE
     Indication: Acute lymphocytic leukaemia
     Dosage: 3975 IU, QD, D6
     Route: 042
     Dates: start: 20190513, end: 20190513
  2. CYTARABINE [Suspect]
     Active Substance: CYTARABINE
     Indication: Acute lymphocytic leukaemia
     Dosage: 8000 MG, QD, D1, D2
     Route: 042
     Dates: start: 20190507, end: 20190508
  3. CYTARABINE [Suspect]
     Active Substance: CYTARABINE
     Dosage: 40 MG, QD, D5
     Route: 037
     Dates: start: 20190511
  4. ETOPOSIDE [Suspect]
     Active Substance: ETOPOSIDE
     Indication: Acute lymphocytic leukaemia
     Dosage: 300 MG, QD ON D3, D4, D5
     Route: 042
     Dates: start: 20190509, end: 20190511
  5. DEXAMETHASONE SODIUM SUCCINATE [Suspect]
     Active Substance: DEXAMETHASONE SODIUM SUCCINATE
     Indication: Acute lymphocytic leukaemia
     Dosage: 40 MG, QD, D1TO D5
     Route: 048
     Dates: start: 20190507, end: 20190511
  6. MITOXANTRONE HYDROCHLORIDE [Suspect]
     Active Substance: MITOXANTRONE HYDROCHLORIDE
     Indication: Acute lymphocytic leukaemia
     Dosage: 16 MG, QD, D3, D4
     Route: 042
     Dates: start: 20190509, end: 20190510
  7. METHOTREXATE [Suspect]
     Active Substance: METHOTREXATE
     Indication: Acute lymphocytic leukaemia
     Dosage: 15 MG, QD, D5
     Route: 037
     Dates: start: 20190511, end: 20190511

REACTIONS (1)
  - Escherichia sepsis [Recovered/Resolved]

NARRATIVE: CASE EVENT DATE: 20190517
